FAERS Safety Report 14197157 (Version 1)
Quarter: 2017Q4

REPORT INFORMATION
  Report Type: Spontaneous
  Country: US (occurrence: US)
  Receive Date: 20171116
  Receipt Date: 20171116
  Transmission Date: 20180321
  Serious: No
  Sender: FDA-Public Use
  Company Number: US-ACTELION-A-NJ2017-160083

PATIENT
  Age: 79 Year
  Sex: Male
  Weight: 102.4 kg

DRUGS (2)
  1. UPTRAVI [Suspect]
     Active Substance: SELEXIPAG
     Indication: PULMONARY ARTERIAL HYPERTENSION
     Dosage: 200 MCG, BID
     Route: 048
  2. UPTRAVI [Suspect]
     Active Substance: SELEXIPAG
     Dosage: 400 MCG, BID
     Route: 048

REACTIONS (8)
  - Feeding disorder [Recovered/Resolved]
  - Diarrhoea [Unknown]
  - Musculoskeletal pain [Unknown]
  - Decreased appetite [Recovered/Resolved]
  - Headache [Unknown]
  - Myalgia [Unknown]
  - Malaise [Recovered/Resolved]
  - Pain in extremity [Unknown]

NARRATIVE: CASE EVENT DATE: 20170922
